FAERS Safety Report 18171656 (Version 2)
Quarter: 2020Q3

REPORT INFORMATION
  Report Type: Report from Study
  Country: None (occurrence: IL)
  Receive Date: 20200820
  Receipt Date: 20200914
  Transmission Date: 20201103
  Serious: Yes (Hospitalization)
  Sender: FDA-Public Use
  Company Number: IL-ABBVIE-20K-082-3529959-00

PATIENT
  Sex: Female

DRUGS (2)
  1. DUODOPA [Suspect]
     Active Substance: CARBIDOPA\LEVODOPA
     Indication: PARKINSON^S DISEASE
     Dosage: CURRENT MD  11 ML, CURRENT CD 2.2 ML/HOUR, CURRENT ED 1 ML
     Route: 050
     Dates: start: 20190324
  2. DUODOPA [Suspect]
     Active Substance: CARBIDOPA\LEVODOPA

REACTIONS (6)
  - Stoma site haemorrhage [Unknown]
  - Intestinal mass [Unknown]
  - Large intestinal obstruction [Unknown]
  - Adrenal mass [Not Recovered/Not Resolved]
  - Intestinal resection [Not Recovered/Not Resolved]
  - Abdominal pain [Unknown]
